FAERS Safety Report 16213111 (Version 2)
Quarter: 2019Q2

REPORT INFORMATION
  Report Type: Spontaneous
  Country: DE (occurrence: DE)
  Receive Date: 20190418
  Receipt Date: 20190517
  Transmission Date: 20190711
  Serious: Yes (Life-Threatening)
  Sender: FDA-Public Use
  Company Number: DE-VERTEX PHARMACEUTICALS-2019-003205

PATIENT
  Age: 46 Year
  Sex: Male

DRUGS (18)
  1. KALYDECO [Suspect]
     Active Substance: IVACAFTOR
     Indication: CYSTIC FIBROSIS
     Dosage: 1 DOSAGE FORM, PER DAY
     Route: 048
     Dates: start: 20190222, end: 20190307
  2. ACC                                /00082801/ [Concomitant]
     Active Substance: ACETYLCYSTEINE
     Dosage: 1200 MG, QD
  3. ADEK [Concomitant]
     Dosage: 1 DOSAGE FORM, QD
  4. GERNEBCIN [Concomitant]
     Active Substance: TOBRAMYCIN SULFATE
     Dosage: 560 MG EVERY DAY
     Route: 042
     Dates: end: 20190308
  5. GERNEBCIN [Concomitant]
     Active Substance: TOBRAMYCIN SULFATE
     Dosage: 640 MG, QD
     Route: 042
  6. BERODUAL [Concomitant]
     Active Substance: FENOTEROL HYDROBROMIDE\IPRATROPIUM BROMIDE
     Dosage: 2 DOSAGE FORM
  7. PULMOZYME [Concomitant]
     Active Substance: DORNASE ALFA
     Dosage: 2.5 INTERNATIONAL UNIT, QD
  8. RISEDRONATE [Concomitant]
     Active Substance: RISEDRONATE SODIUM
     Dosage: 35 MG QW, ON THURSDAYS
  9. PREDNISOLON                        /00016201/ [Concomitant]
     Active Substance: PREDNISOLONE
     Dosage: 50 MG, PRN FOR ALLERGIC REACTIONS
  10. SYMKEVI [Suspect]
     Active Substance: IVACAFTOR\TEZACAFTOR
     Indication: CYSTIC FIBROSIS
     Dosage: 1 DOSAGE FORM EVERY DAY
     Route: 048
     Dates: start: 20190222, end: 20190307
  11. KREON [Concomitant]
     Active Substance: PANCRELIPASE
     Dosage: 25 INTERNATIONAL UNIT
  12. SPIRIVA [Concomitant]
     Active Substance: TIOTROPIUM BROMIDE MONOHYDRATE
     Dosage: 1 DOSAGE FORM, QD
  13. BUDESONIDE. [Concomitant]
     Active Substance: BUDESONIDE
     Dosage: 400 MICROGRAM EVERY 2 DAYS
  14. FORMOTEROL [Concomitant]
     Active Substance: FORMOTEROL
     Dosage: 24 MICROGRAM, QD
  15. MUCOCLEAR                          /00075401/ [Concomitant]
     Dosage: 8 MILLILITER, QD
     Route: 055
  16. TAZOBAC [Concomitant]
     Active Substance: PIPERACILLIN SODIUM\TAZOBACTAM SODIUM
     Dosage: 4 DOSAGE FORM EVERY DAY
     Route: 042
     Dates: end: 20190308
  17. AZITHROMYCIN ANHYDROUS. [Concomitant]
     Active Substance: AZITHROMYCIN ANHYDROUS
     Dosage: 500 MG, QD M,W,F PAUSED NOW
  18. QUINSAIR [Concomitant]
     Dosage: 480 MG, QD FOR 2WKS, PAUSE FOR 2 WKS

REACTIONS (1)
  - Haemoptysis [Not Recovered/Not Resolved]

NARRATIVE: CASE EVENT DATE: 20190307
